FAERS Safety Report 8885284 (Version 1)
Quarter: 2012Q4

REPORT INFORMATION
  Report Type: 
  Country: US (occurrence: US)
  Receive Date: 20121102
  Receipt Date: 20121102
  Transmission Date: 20130627
  Serious: No
  Sender: FDA-Public Use
  Company Number: US-009507513-1210USA014228

PATIENT
  Sex: Female

DRUGS (3)
  1. VICTRELIS [Suspect]
     Dosage: 4 DF, q8h
     Dates: start: 20121015
  2. PEGASYS [Suspect]
     Dosage: 180 Microgram, UNK
  3. RIBASPHERE [Suspect]
     Dosage: 200 mg, UNK

REACTIONS (6)
  - Dyspnoea [Unknown]
  - Pruritus [Unknown]
  - Fatigue [Unknown]
  - Asthenia [Unknown]
  - Dizziness [Unknown]
  - Rash [Unknown]
